FAERS Safety Report 9261984 (Version 1)
Quarter: 2013Q2

REPORT INFORMATION
  Report Type: Spontaneous
  Country: US (occurrence: US)
  Receive Date: 20130429
  Receipt Date: 20130429
  Transmission Date: 20140414
  Serious: Yes (Hospitalization)
  Sender: FDA-Public Use
  Company Number: US-MYLANLABS-2013S1008710

PATIENT
  Age: 27 Year
  Sex: Male

DRUGS (1)
  1. KETAMINE [Suspect]
     Dosage: 3 G/DAY
     Route: 065

REACTIONS (4)
  - Biliary dilatation [Recovering/Resolving]
  - Drug abuse [Recovering/Resolving]
  - Dysuria [Unknown]
  - Abdominal pain [Recovered/Resolved]
